FAERS Safety Report 22053314 (Version 2)
Quarter: 2023Q2

REPORT INFORMATION
  Report Type: Report from Study
  Country: US (occurrence: US)
  Receive Date: 20230302
  Receipt Date: 20230414
  Transmission Date: 20230722
  Serious: Yes (Death, Hospitalization, Other)
  Sender: FDA-Public Use
  Company Number: US-002147023-NVSC2023US047561

PATIENT
  Age: 87 Year
  Sex: Female

DRUGS (18)
  1. ENTRESTO [Suspect]
     Active Substance: SACUBITRIL\VALSARTAN
     Indication: Cardiac failure chronic
     Dosage: 1 DOSAGE FORM, BID (180 TABLETS) (3 REFILLS)
     Route: 048
     Dates: start: 20220517
  2. CARVEDILOL [Suspect]
     Active Substance: CARVEDILOL
     Indication: Cardiac failure chronic
     Dosage: 1 DOSAGE FORM, BID (60 TABLET) (5 REFILLS) (WITH MEALS)
     Route: 048
     Dates: start: 20180925
  3. CARVEDILOL [Suspect]
     Active Substance: CARVEDILOL
     Indication: Coronary artery disease
  4. TORSEMIDE [Suspect]
     Active Substance: TORSEMIDE
     Indication: Cardiac failure chronic
     Dosage: 40 MG, QD
     Route: 048
     Dates: start: 20220620
  5. TORSEMIDE [Suspect]
     Active Substance: TORSEMIDE
     Indication: Polyuria
     Dosage: 20 MG, QD
     Route: 048
  6. JARDIANCE [Suspect]
     Active Substance: EMPAGLIFLOZIN
     Indication: Cardiac failure chronic
     Dosage: 1 DOSAGE FORM
     Route: 065
  7. ASPIRIN [Concomitant]
     Active Substance: ASPIRIN
     Indication: Coronary artery disease
     Dosage: 1 DOSAGE FORM, QD (30 TABLETS)
     Route: 065
     Dates: start: 20140428
  8. CALCIUM [Concomitant]
     Active Substance: CALCIUM
     Indication: Product used for unknown indication
     Dosage: 1 DOSAGE FORM, QD
     Route: 065
  9. FERRIC SULFATE [Concomitant]
     Active Substance: FERRIC SULFATE
     Indication: Product used for unknown indication
     Dosage: 1 DOSAGE FORM, QD (65 FE, AS DIRECTED)
     Route: 048
  10. MAGNESIUM OXIDE [Concomitant]
     Active Substance: MAGNESIUM OXIDE
     Indication: Product used for unknown indication
     Dosage: 1 DOSAGE FORM, QHS (BEDTIME) (SUFFICIENT TABLET)
     Route: 048
  11. NITROGLYCERIN [Concomitant]
     Active Substance: NITROGLYCERIN
     Indication: Product used for unknown indication
     Dosage: 1 DOSAGE FORM, QD  (APPLY ONE PATCH IN THE MORNING AND REMOVE IT AT BEDTIME) (1 REFILL)
     Route: 062
     Dates: start: 20140124
  12. OMEPRAZOLE [Concomitant]
     Active Substance: OMEPRAZOLE
     Indication: Product used for unknown indication
     Dosage: 1 DOSAGE FORM, QD (DELAYED RELEASE)
     Route: 048
  13. ONDANSETRON [Concomitant]
     Active Substance: ONDANSETRON
     Indication: Product used for unknown indication
     Dosage: 1 DOSAGE FORM, Q6H (DISINTEGRATING TABLET)
     Route: 048
  14. TRIAMCINOLONE ACETONIDE [Concomitant]
     Active Substance: TRIAMCINOLONE ACETONIDE
     Indication: Product used for unknown indication
     Dosage: 15 G, BID (APPLY A THIN LAYER TO AFFECTED AREA) (2 REFILLS)
     Route: 061
  15. TYLENOL [Concomitant]
     Active Substance: ACETAMINOPHEN
     Indication: Product used for unknown indication
     Dosage: 1 TO 2 TABLETS, Q4H (AS NEEDED)
     Route: 065
  16. VITAMIN D3 [Concomitant]
     Active Substance: CHOLECALCIFEROL
     Indication: Product used for unknown indication
     Dosage: 1 DOSAGE FORM, QD (2000 UT) (90 TABLET) (3 REFILLS)
     Route: 048
  17. FUROSEMIDE [Concomitant]
     Active Substance: FUROSEMIDE
     Indication: Coronary artery disease
     Dosage: UNK
     Route: 065
  18. LOSARTAN [Concomitant]
     Active Substance: LOSARTAN
     Indication: Coronary artery disease
     Dosage: UNK
     Route: 065

REACTIONS (11)
  - Death [Fatal]
  - Orthostatic hypotension [Unknown]
  - Syncope [Unknown]
  - Aortic arteriosclerosis [Unknown]
  - Mitral valve incompetence [Unknown]
  - Tricuspid valve incompetence [Unknown]
  - Pulmonary valve incompetence [Unknown]
  - Polyuria [Unknown]
  - Ventricular hypertrophy [Unknown]
  - Left ventricular dysfunction [Unknown]
  - Atrial enlargement [Unknown]

NARRATIVE: CASE EVENT DATE: 20221226
